FAERS Safety Report 6248377-9 (Version None)
Quarter: 2009Q2

REPORT INFORMATION
  Report Type: 
  Country: None (occurrence: None)
  Receive Date: 20090629
  Receipt Date: 20090623
  Transmission Date: 20091009
  Serious: Yes (Hospitalization, Other)
  Sender: FDA-Public Use
  Company Number: PHHY2009GB25098

PATIENT
  Age: 9 Year
  Sex: Male

DRUGS (9)
  1. CYCLOSPORINE [Interacting]
     Indication: HEART TRANSPLANT
  2. AZATHIOPRINE [Suspect]
     Indication: HEART TRANSPLANT
  3. CYCLOPHOSPHAMIDE [Interacting]
     Dosage: 2 GM/M2
  4. CYCLOPHOSPHAMIDE [Interacting]
     Dosage: 300 MG/M^2
  5. VINCRISTINE [Concomitant]
  6. METHOTREXATE [Concomitant]
     Dosage: 1G/M^2
  7. METHOTREXATE [Concomitant]
     Dosage: 1.5 G/M^2
  8. PREDNISOLONE [Concomitant]
  9. ACYCLOVIR [Concomitant]

REACTIONS (10)
  - ABDOMINAL PAIN [None]
  - ACUTE LYMPHOCYTIC LEUKAEMIA [None]
  - ARTHRALGIA [None]
  - BURKITT'S LYMPHOMA STAGE III [None]
  - CONSTIPATION [None]
  - DRUG INTERACTION [None]
  - EPSTEIN-BARR VIRUS ASSOCIATED LYMPHOPROLIFERATIVE DISORDER [None]
  - NEUROTOXICITY [None]
  - SPLENOMEGALY [None]
  - VASCULAR GRAFT COMPLICATION [None]
